FAERS Safety Report 12127630 (Version 1)
Quarter: 2016Q1

REPORT INFORMATION
  Report Type: Spontaneous
  Country: DE (occurrence: DE)
  Receive Date: 20160229
  Receipt Date: 20160229
  Transmission Date: 20160526
  Serious: Yes (Disabling, Other)
  Sender: FDA-Public Use
  Company Number: DE-GILEAD-2016-0199836

PATIENT
  Age: 89 Year
  Sex: Female
  Weight: 43 kg

DRUGS (6)
  1. VIREAD [Concomitant]
     Active Substance: TENOFOVIR DISOPROXIL FUMARATE
     Indication: HEPATITIS B
     Dosage: 245 MG, UNK
     Route: 048
     Dates: start: 20150416
  2. SPIRONOLACTON [Concomitant]
     Active Substance: SPIRONOLACTONE
     Indication: HYPERTENSION
     Dosage: 25 MG, UNK
     Route: 048
  3. RAMIPRIL. [Concomitant]
     Active Substance: RAMIPRIL
     Indication: HYPERTENSION
     Dosage: 1.25 MG, UNK
     Route: 048
  4. ZYDELIG [Suspect]
     Active Substance: IDELALISIB
     Indication: LYMPHOMA
     Dosage: 150 MG, BID
     Route: 048
     Dates: start: 20151218
  5. METOPROLOL. [Concomitant]
     Active Substance: METOPROLOL
     Dosage: 190 MG, UNK
     Route: 048
  6. XARELTO [Concomitant]
     Active Substance: RIVAROXABAN
     Dosage: 15 MG, UNK
     Route: 048

REACTIONS (4)
  - Ulcerative keratitis [Recovered/Resolved with Sequelae]
  - Transaminases increased [Not Recovered/Not Resolved]
  - Rash [Not Recovered/Not Resolved]
  - Hypopyon [Recovered/Resolved with Sequelae]

NARRATIVE: CASE EVENT DATE: 20160112
